FAERS Safety Report 13661930 (Version 11)
Quarter: 2017Q3

REPORT INFORMATION
  Report Type: Report from Study
  Country: FR (occurrence: FR)
  Receive Date: 20170616
  Receipt Date: 20170815
  Transmission Date: 20171127
  Serious: Yes (Life-Threatening, Hospitalization)
  Sender: FDA-Public Use
  Company Number: FR-PFIZER INC-2017263712

PATIENT
  Age: 54 Year
  Sex: Male
  Weight: 85.5 kg

DRUGS (23)
  1. SUNITINIB MALATE. [Suspect]
     Active Substance: SUNITINIB MALATE
     Indication: RENAL CELL CARCINOMA
     Dosage: 50 MG, CYCLIC (50 MG ONCE DAILY FOR 4 WEEKS AND THEN OFF TREATMENT FOR 2 WEEKS)
     Route: 048
     Dates: start: 20170511, end: 20170607
  2. NICARDIPINE HYDROCHLORIDE. [Concomitant]
     Active Substance: NICARDIPINE HYDROCHLORIDE
     Dosage: 50 MG, UNK
     Dates: start: 20170509, end: 20170523
  3. PREDNISONE. [Concomitant]
     Active Substance: PREDNISONE
     Dosage: 60 MG, UNK
     Dates: start: 20170411
  4. SPASFON [Concomitant]
     Active Substance: PHLOROGLUCINOL\1,3,5-TRIMETHOXYBENZENE
     Dosage: 160 MG, UNK
     Dates: start: 20170518
  5. HECORIA [Concomitant]
     Active Substance: TACROLIMUS
     Dosage: 1 DF, UNK
     Dates: start: 20170523
  6. NORMACOL [Concomitant]
     Active Substance: HERBALS\KARAYA GUM
     Dosage: 1 DF, UNK
     Dates: start: 20170527, end: 20170527
  7. CICALFATE [Concomitant]
     Dosage: 1 DF, UNK
     Dates: start: 20170517, end: 20170608
  8. DESLORATADINE. [Concomitant]
     Active Substance: DESLORATADINE
     Dosage: 1 DF, UNK
     Dates: start: 20170411
  9. KETODERM [Concomitant]
     Active Substance: KETOCONAZOLE
     Dosage: 1 DF, UNK
     Dates: start: 20170523
  10. SODIUM BICARBONATE. [Concomitant]
     Active Substance: SODIUM BICARBONATE
     Dosage: 1 DF, UNK
     Route: 048
     Dates: start: 20170509
  11. SMECTA [Concomitant]
     Active Substance: MONTMORILLONITE
     Dosage: 1 DF, UNK
     Route: 048
     Dates: start: 20170509
  12. GAVISCON [Concomitant]
     Active Substance: ALUMINUM HYDROXIDE\MAGNESIUM CARBONATE
     Dosage: 1 DF, UNK
     Route: 048
     Dates: start: 20170512
  13. MICROLAX [Concomitant]
     Dosage: 1 DF, UNK
     Dates: start: 20170527, end: 20170530
  14. PRIMPERAN [Concomitant]
     Active Substance: METOCLOPRAMIDE HYDROCHLORIDE
     Dosage: 10 MG, UNK
     Dates: start: 20170523
  15. MOVICOL [Concomitant]
     Active Substance: POLYETHYLENE GLYCOL 3350\POTASSIUM CHLORIDE\SODIUM BICARBONATE\SODIUM CHLORIDE
     Dosage: 1 DF, UNK
     Dates: start: 20170526, end: 20170602
  16. UREA CREAM [Concomitant]
     Active Substance: UREA
     Dosage: 1 DF, UNK
     Dates: start: 20170509
  17. DIPROSONE [Concomitant]
     Active Substance: BETAMETHASONE DIPROPIONATE
     Dosage: 1 DF, UNK
     Dates: start: 20170523
  18. IRBESARTAN. [Concomitant]
     Active Substance: IRBESARTAN
     Dosage: 150 MG, UNK
     Dates: start: 20170411, end: 20170622
  19. PANTOPRAZOLE [Concomitant]
     Active Substance: PANTOPRAZOLE
     Dosage: 40 MG, UNK
     Dates: start: 20170411
  20. RILMENIDINE [Concomitant]
     Active Substance: RILMENIDINE
     Dosage: 1 MG, UNK
     Dates: start: 20170411, end: 20170622
  21. GLYCEROL\PARAFFIN [Concomitant]
     Active Substance: GLYCERIN\PARAFFIN
     Dosage: 1 DF, UNK
     Dates: start: 20170509
  22. ACETAMINOPHEN. [Concomitant]
     Active Substance: ACETAMINOPHEN
     Dosage: 1 G, UNK
     Dates: start: 20170523
  23. METEOSPASMYL [Concomitant]
     Active Substance: ALVERINE CITRATE\DIMETHICONE
     Dosage: 60 MG, UNK
     Dates: start: 20170526, end: 20170609

REACTIONS (1)
  - Peritonitis [Recovered/Resolved]

NARRATIVE: CASE EVENT DATE: 20170528
